FAERS Safety Report 10749942 (Version 2)
Quarter: 2015Q2

REPORT INFORMATION
  Report Type: Report from Study
  Country: US (occurrence: US)
  Receive Date: 20150129
  Receipt Date: 20150416
  Transmission Date: 20150821
  Serious: Yes (Hospitalization)
  Sender: FDA-Public Use
  Company Number: US-ABBVIE-15P-163-1339014-00

PATIENT
  Age: 49 Year
  Sex: Female
  Weight: 73.96 kg

DRUGS (1)
  1. HUMIRA [Suspect]
     Active Substance: ADALIMUMAB
     Indication: COLITIS ULCERATIVE
     Route: 058
     Dates: start: 20141104, end: 20150211

REACTIONS (22)
  - Asthenia [Recovering/Resolving]
  - Abdominal tenderness [Recovering/Resolving]
  - Diverticulum [Recovering/Resolving]
  - Abdominal distension [Recovering/Resolving]
  - Gastrooesophageal reflux disease [Recovering/Resolving]
  - Diarrhoea [Recovering/Resolving]
  - Nasopharyngitis [Unknown]
  - Drug ineffective [Unknown]
  - Tachycardia [Recovering/Resolving]
  - Abdominal pain upper [Recovering/Resolving]
  - Fluid intake reduced [Recovering/Resolving]
  - Colitis ulcerative [Unknown]
  - Constipation [Unknown]
  - Haematemesis [Recovering/Resolving]
  - Hospitalisation [Recovered/Resolved]
  - Muscle spasms [Recovering/Resolving]
  - Food intolerance [Recovering/Resolving]
  - Nausea [Recovering/Resolving]
  - Fatigue [Recovering/Resolving]
  - Intestinal obstruction [Unknown]
  - Flatulence [Recovering/Resolving]
  - Tachycardia [Recovering/Resolving]

NARRATIVE: CASE EVENT DATE: 201412
